FAERS Safety Report 16135032 (Version 1)
Quarter: 2019Q1

REPORT INFORMATION
  Report Type: Spontaneous
  Country: GB (occurrence: GB)
  Receive Date: 20190329
  Receipt Date: 20190329
  Transmission Date: 20190418
  Serious: Yes (Other)
  Sender: FDA-Public Use
  Company Number: GB-JNJFOC-20190332715

PATIENT
  Age: 59 Year
  Sex: Female
  Weight: 47.62 kg

DRUGS (4)
  1. SUMATRIPTAN. [Concomitant]
     Active Substance: SUMATRIPTAN
     Indication: PRODUCT USED FOR UNKNOWN INDICATION
     Route: 065
  2. LEVOTHYROXINE. [Concomitant]
     Active Substance: LEVOTHYROXINE
     Indication: HYPOTHYROIDISM
     Route: 065
  3. TOPIRAMATE. [Suspect]
     Active Substance: TOPIRAMATE
     Indication: MIGRAINE WITH AURA
     Route: 048
     Dates: start: 20170101, end: 20180601
  4. TRAMADOL. [Concomitant]
     Active Substance: TRAMADOL
     Indication: PRODUCT USED FOR UNKNOWN INDICATION
     Route: 065

REACTIONS (14)
  - Abdominal pain [Recovered/Resolved]
  - Alopecia [Recovered/Resolved]
  - Abnormal loss of weight [Recovered/Resolved]
  - Petechiae [Recovered/Resolved]
  - Hair texture abnormal [Unknown]
  - Oral candidiasis [Recovered/Resolved]
  - Palpitations [Recovered/Resolved]
  - Nail discolouration [Recovered/Resolved]
  - Acne [Unknown]
  - Onychomadesis [Unknown]
  - Scab [Unknown]
  - Gastrointestinal disorder [Recovered/Resolved]
  - Tinea versicolour [Recovered/Resolved]
  - Pruritus [Unknown]

NARRATIVE: CASE EVENT DATE: 20180601
